FAERS Safety Report 7059545-0 (Version None)
Quarter: 2010Q4

REPORT INFORMATION
  Report Type: 
  Country: None (occurrence: None)
  Receive Date: 20101025
  Receipt Date: 20101011
  Transmission Date: 20110411
  Serious: Yes (Other)
  Sender: FDA-Public Use
  Company Number: PHHY2010NL63592

PATIENT
  Sex: Female
  Weight: 80 kg

DRUGS (7)
  1. RASILEZ [Suspect]
     Indication: HYPERTENSION
     Dosage: 150 MG, QD
     Route: 048
     Dates: start: 20100604, end: 20100913
  2. IRBESARTAN [Concomitant]
     Dosage: 1X 300
     Route: 048
     Dates: end: 20100914
  3. HCT [Concomitant]
     Dosage: 1X 25
     Route: 048
     Dates: end: 20100914
  4. BARNIDIPINE [Concomitant]
     Dosage: 1X 20
     Route: 048
     Dates: end: 20100914
  5. DOXAZOSIN MESYLATE [Concomitant]
     Dosage: 1X 4
     Route: 048
     Dates: end: 20100914
  6. BISOPROLOL [Concomitant]
     Dosage: 1X10
     Route: 048
     Dates: end: 20100914
  7. IBUPROFEN [Concomitant]
     Dosage: WHEN NEEDED

REACTIONS (5)
  - BLOOD PRESSURE INCREASED [None]
  - CIRCULATORY COLLAPSE [None]
  - HYPOTENSION [None]
  - MALAISE [None]
  - RENAL IMPAIRMENT [None]
